FAERS Safety Report 16974728 (Version 3)
Quarter: 2019Q4

REPORT INFORMATION
  Report Type: Report from Study
  Country: IE (occurrence: IE)
  Receive Date: 20191030
  Receipt Date: 20191118
  Transmission Date: 20200122
  Serious: Yes (Life-Threatening, Other)
  Sender: FDA-Public Use
  Company Number: IE-PFIZER INC-2019469627

PATIENT

DRUGS (12)
  1. MITOXANTRONE HCL [Suspect]
     Active Substance: MITOXANTRONE HYDROCHLORIDE
     Indication: ACUTE MYELOID LEUKAEMIA
     Dosage: 8.4 MG/M2, 1X/DAY
     Route: 042
     Dates: start: 20191018, end: 20191022
  2. LASIX [Concomitant]
     Active Substance: FUROSEMIDE
     Indication: FLUID OVERLOAD
     Dosage: UNK
     Dates: start: 20191019
  3. ORAMORPH SR SUSTAINED RELEASE [Concomitant]
     Active Substance: MORPHINE SULFATE
     Indication: PAIN
     Dosage: 2 MG, AS NEEDED (EVERY 4-6 HRS) (ALSO GIVEN ON 26-10-19)
     Dates: start: 20191018
  4. FRUSEMIDE [FUROSEMIDE] [Concomitant]
     Active Substance: FUROSEMIDE
     Indication: FLUID OVERLOAD
     Dosage: 8 MG, 2X/DAY
     Dates: start: 20191019, end: 20191021
  5. TRIMETHOPRIM/ SULFAMETHOXAZOLE [Concomitant]
     Active Substance: SULFAMETHOXAZOLE\TRIMETHOPRIM
     Indication: PROPHYLAXIS
     Dosage: 240 MG, 2X/DAY
     Dates: start: 20191019, end: 20191020
  6. PARACETAMOL [Concomitant]
     Active Substance: ACETAMINOPHEN
     Indication: PAIN
     Dosage: 250 MG, AS NEEDED (EVERY 4 HOURS)
     Dates: start: 20191017
  7. GEMTUZUMAB OZOGAMICIN [Suspect]
     Active Substance: GEMTUZUMAB OZOGAMICIN
     Indication: ACUTE MYELOID LEUKAEMIA
     Dosage: 2 MG, UNK
     Route: 042
     Dates: start: 20191021, end: 20191021
  8. AMBISOME [Concomitant]
     Active Substance: AMPHOTERICIN B
     Indication: PROPHYLAXIS
     Dosage: 17 MG, 1X/DAY
     Dates: start: 20191021, end: 20191025
  9. GENTAMYCIN [Concomitant]
     Active Substance: GENTAMICIN
     Indication: FEBRILE NEUTROPENIA
     Dosage: 120 MG, 1X/DAY
     Dates: start: 20191019, end: 20191019
  10. TAZOCIN [Concomitant]
     Active Substance: PIPERACILLIN SODIUM\TAZOBACTAM SODIUM
     Indication: FEBRILE NEUTROPENIA
     Dosage: 1.5 MG, 4X/DAY (EVERY SIX HOURS)
     Dates: start: 20191017, end: 20191024
  11. ZOFRAN [Concomitant]
     Active Substance: ONDANSETRON HYDROCHLORIDE
     Indication: PROPHYLAXIS
     Dosage: 3.5 MG, 3X/DAY (EVERY 8 HOURS)
     Dates: start: 20191018
  12. LAXIDO [Concomitant]
     Active Substance: POLYETHYLENE GLYCOL 3350\POTASSIUM CHLORIDE\SODIUM BICARBONATE\SODIUM CHLORIDE
     Indication: CONSTIPATION
     Dosage: 1 DF, SINGLE (ONE SACHET)
     Dates: start: 20191019, end: 20191019

REACTIONS (2)
  - Electrocardiogram QT prolonged [Recovered/Resolved]
  - Hypothermia [Not Recovered/Not Resolved]

NARRATIVE: CASE EVENT DATE: 20191022
